FAERS Safety Report 8002548-X (Version None)
Quarter: 2011Q4

REPORT INFORMATION
  Report Type: 
  Country: None (occurrence: None)
  Receive Date: 20111222
  Receipt Date: 20111222
  Transmission Date: 20120403
  Serious: Yes (Hospitalization)
  Sender: FDA-Public Use
  Company Number: FR-B.I. PHARMACEUTICALS,INC./RIDGEFIELD-2011-EU-00138BY

PATIENT
  Sex: Male

DRUGS (8)
  1. TELMISARTAN [Suspect]
     Dosage: 80 MG
     Route: 048
     Dates: start: 20110913, end: 20111010
  2. PRAVASTATIN SODIUM [Suspect]
     Dosage: 20 MG
     Route: 048
     Dates: end: 20111010
  3. FUNGIZONE [Concomitant]
     Dates: start: 20110912
  4. ASPIRIN [Concomitant]
  5. ACETAMINOPHEN [Concomitant]
     Dates: start: 20110911
  6. OXAZEPAM [Concomitant]
     Dates: start: 20110912
  7. AMOXICILLIN TRIHYDRATE [Suspect]
     Indication: ENDOCARDITIS
     Route: 042
     Dates: start: 20110914, end: 20111010
  8. GENTAMICIN SULFATE [Concomitant]
     Dates: start: 20110914, end: 20110915

REACTIONS (3)
  - RENAL FAILURE ACUTE [None]
  - DRUG HYPERSENSITIVITY [None]
  - DEHYDRATION [None]
